FAERS Safety Report 26107088 (Version 2)
Quarter: 2025Q4

REPORT INFORMATION
  Report Type: Report from Study
  Country: EU (occurrence: EU)
  Receive Date: 20251201
  Receipt Date: 20251221
  Transmission Date: 20260117
  Serious: Yes (Hospitalization)
  Sender: ABBVIE
  Company Number: EU-ABBVIE-6567273

PATIENT
  Age: 5 Year
  Sex: Male
  Weight: 24 kg

DRUGS (3)
  1. UPADACITINIB [Suspect]
     Active Substance: UPADACITINIB
     Indication: Colitis ulcerative
     Route: 048
     Dates: start: 202402
  2. UPADACITINIB [Suspect]
     Active Substance: UPADACITINIB
     Indication: Colitis ulcerative
     Route: 048
     Dates: start: 20250807
  3. UPADACITINIB [Suspect]
     Active Substance: UPADACITINIB
     Indication: Colitis ulcerative
     Dosage: MAINTENANCE DOSE
     Route: 048
     Dates: start: 20250214

REACTIONS (3)
  - Adenovirus infection [Recovered/Resolved]
  - Colitis ulcerative [Unknown]
  - Enteritis [Unknown]

NARRATIVE: CASE EVENT DATE: 20250801
